FAERS Safety Report 8225814-1 (Version None)
Quarter: 2012Q1

REPORT INFORMATION
  Report Type: 
  Country: None (occurrence: None)
  Receive Date: 20120321
  Receipt Date: 20120309
  Transmission Date: 20120608
  Serious: Yes (Hospitalization)
  Sender: FDA-Public Use
  Company Number: US-GILEAD-2012-0052100

PATIENT
  Sex: Female

DRUGS (78)
  1. AZTREONAM [Suspect]
     Indication: BRONCHIECTASIS
     Dosage: UNK
  2. DEXLANSOPRAZOLE [Concomitant]
     Dosage: UNK
     Dates: start: 20120306
  3. DEXLANSOPRAZOLE [Concomitant]
     Dosage: UNK
     Dates: start: 20120111
  4. ASPIRIN [Concomitant]
     Dosage: UNK
     Dates: start: 20120209
  5. SIMVASTATIN [Concomitant]
     Dosage: UNK
     Dates: start: 20120306
  6. CALCIUM CARBONATE [Concomitant]
     Dosage: UNK
     Dates: start: 20120306
  7. CALCIUM CARBONATE [Concomitant]
     Dosage: UNK
     Dates: start: 20120111
  8. POTASSIUM [Concomitant]
     Dosage: UNK
     Dates: start: 20120306
  9. LOSARTAN POTASSIUM AND HYDROCHLOROTHIAZIDE [Concomitant]
     Dosage: UNK
     Dates: start: 20120209
  10. MUCINEX [Concomitant]
     Dosage: UNK
     Dates: start: 20111223
  11. CARTIA                             /00002701/ [Concomitant]
     Dosage: UNK
     Dates: start: 20120227
  12. VESICARE [Concomitant]
     Dosage: UNK
     Dates: start: 20111223
  13. PRADAXA [Concomitant]
     Dosage: UNK
     Dates: start: 20120306
  14. PRADAXA [Concomitant]
     Dosage: UNK
     Dates: start: 20111223
  15. ASPIRIN [Concomitant]
     Indication: CHEST PAIN
     Dosage: UNK
     Dates: start: 20120306
  16. IPRATROPIUM W/LEVOSALBUTAMOL [Concomitant]
     Dosage: UNK
     Dates: start: 19980311
  17. POTASSIUM [Concomitant]
     Dosage: UNK
     Dates: start: 20111223
  18. POTASSIUM [Concomitant]
     Dosage: UNK
     Dates: start: 20120111
  19. ZOLPIDEM [Concomitant]
     Dosage: UNK
     Dates: start: 20120209
  20. VESICARE [Concomitant]
     Dosage: UNK
     Dates: start: 20120227
  21. LEVAQUIN [Concomitant]
     Dosage: UNK
     Dates: start: 20120306, end: 20120308
  22. IPRATROPIUM W/LEVOSALBUTAMOL [Concomitant]
     Dosage: UNK
     Dates: start: 20120209
  23. SIMVASTATIN [Concomitant]
     Dosage: UNK
     Dates: start: 20111223
  24. JANUVIA [Concomitant]
     Dosage: UNK
     Dates: start: 20120209
  25. ZOLPIDEM [Concomitant]
     Dosage: UNK
     Dates: start: 20120111
  26. MUCINEX [Concomitant]
     Dosage: UNK
     Dates: start: 20120227
  27. FLECAINIDE ACETATE [Concomitant]
     Dosage: UNK
     Dates: start: 20120306
  28. VESICARE [Concomitant]
     Dosage: UNK
     Dates: start: 20120209
  29. PRADAXA [Concomitant]
     Dosage: UNK
     Dates: start: 20120209
  30. IPRATROPIUM W/LEVOSALBUTAMOL [Concomitant]
     Dosage: UNK
     Dates: start: 20120111
  31. IPRATROPIUM W/LEVOSALBUTAMOL [Concomitant]
     Dosage: UNK
     Dates: start: 20120227
  32. IPRATROPIUM W/LEVOSALBUTAMOL [Concomitant]
     Dosage: UNK
     Dates: start: 20111223
  33. JANUVIA [Concomitant]
     Dosage: UNK
     Dates: start: 20120306
  34. JANUVIA [Concomitant]
     Dosage: UNK
     Dates: start: 20111223
  35. POTASSIUM [Concomitant]
     Dosage: UNK
     Dates: start: 20120209
  36. LOSARTAN POTASSIUM AND HYDROCHLOROTHIAZIDE [Concomitant]
     Dosage: UNK
     Dates: start: 20120227
  37. CARTIA                             /00002701/ [Concomitant]
     Dosage: UNK
     Dates: start: 20111223
  38. DEXLANSOPRAZOLE [Concomitant]
     Dosage: UNK
     Dates: start: 20120209
  39. FLONASE [Concomitant]
     Dosage: UNK
     Dates: start: 20120306
  40. CALCIUM CARBONATE [Concomitant]
     Dosage: UNK
     Dates: start: 20120227
  41. ZOLPIDEM [Concomitant]
     Dosage: UNK
     Dates: start: 20111223
  42. MUCINEX [Concomitant]
     Dosage: UNK
     Dates: start: 20120306
  43. CARTIA                             /00002701/ [Concomitant]
     Dosage: UNK
     Dates: start: 20120111
  44. FLECAINIDE ACETATE [Concomitant]
     Dosage: UNK
     Dates: start: 20120111
  45. VESICARE [Concomitant]
     Dosage: UNK
     Dates: start: 20120306
  46. PRADAXA [Concomitant]
     Dosage: UNK
     Dates: start: 20120111
  47. ASPIRIN [Concomitant]
     Dosage: UNK
     Dates: start: 20120227
  48. SIMVASTATIN [Concomitant]
     Dosage: UNK
     Dates: start: 20120209
  49. POTASSIUM [Concomitant]
     Dosage: UNK
     Dates: start: 20120227
  50. LOSARTAN POTASSIUM AND HYDROCHLOROTHIAZIDE [Concomitant]
     Dosage: UNK
     Dates: start: 20111223
  51. ZOLPIDEM [Concomitant]
     Dosage: UNK
     Dates: start: 20120227
  52. DEXLANSOPRAZOLE [Concomitant]
     Dosage: UNK
  53. ASPIRIN [Concomitant]
     Dosage: UNK
     Dates: start: 20120111
  54. FLONASE [Concomitant]
     Dosage: UNK
     Dates: start: 20120227
  55. IPRATROPIUM W/LEVOSALBUTAMOL [Concomitant]
     Dosage: UNK
     Dates: start: 20120306
  56. JANUVIA [Concomitant]
     Dosage: UNK
     Dates: start: 20120227
  57. CALCIUM CARBONATE [Concomitant]
     Dosage: UNK
     Dates: start: 20120209
  58. LOSARTAN POTASSIUM AND HYDROCHLOROTHIAZIDE [Concomitant]
     Dosage: UNK
     Dates: start: 20120306
  59. CARTIA                             /00002701/ [Concomitant]
     Dosage: UNK
     Dates: start: 20120209
  60. FLECAINIDE ACETATE [Concomitant]
     Dosage: UNK
     Dates: start: 20111223
  61. FLECAINIDE ACETATE [Concomitant]
     Dosage: UNK
     Dates: start: 20120209
  62. FLECAINIDE ACETATE [Concomitant]
     Dosage: UNK
     Dates: start: 20120227
  63. PULMICORT [Concomitant]
     Dosage: UNK
     Dates: start: 20120306
  64. PULMICORT [Concomitant]
     Dosage: UNK
     Dates: start: 20111223
  65. PULMICORT [Concomitant]
     Dosage: UNK
     Dates: start: 20120111
  66. PULMICORT [Concomitant]
     Dosage: UNK
     Dates: start: 20120209
  67. PULMICORT [Concomitant]
     Dosage: UNK
     Dates: start: 20120227
  68. LEVAQUIN [Concomitant]
     Dosage: UNK
     Dates: start: 20120227
  69. DEXLANSOPRAZOLE [Concomitant]
     Dosage: UNK
     Dates: start: 20120227
  70. SIMVASTATIN [Concomitant]
     Dosage: UNK
     Dates: start: 20120111
  71. JANUVIA [Concomitant]
     Dosage: UNK
     Dates: start: 20120111
  72. CALCIUM CARBONATE [Concomitant]
     Dosage: UNK
     Dates: start: 20111223
  73. LOSARTAN POTASSIUM AND HYDROCHLOROTHIAZIDE [Concomitant]
     Dosage: UNK
     Dates: start: 20120111
  74. ZOLPIDEM [Concomitant]
     Dosage: UNK
     Dates: start: 20120306
  75. MUCINEX [Concomitant]
     Dosage: UNK
     Dates: start: 20120111
  76. CARTIA                             /00002701/ [Concomitant]
     Dosage: UNK
     Dates: start: 20120306
  77. VESICARE [Concomitant]
     Dosage: UNK
     Dates: start: 20120111
  78. PRADAXA [Concomitant]
     Dosage: UNK
     Dates: start: 20120227

REACTIONS (1)
  - BRONCHIECTASIS [None]
